FAERS Safety Report 9620195 (Version 1)
Quarter: 2013Q4

REPORT INFORMATION
  Report Type: Spontaneous
  Country: US (occurrence: US)
  Receive Date: 20131014
  Receipt Date: 20131014
  Transmission Date: 20140711
  Serious: Yes (Other)
  Sender: FDA-Public Use
  Company Number: PHEH2013US021184

PATIENT
  Sex: Female

DRUGS (1)
  1. DIOVAN [Suspect]
     Dosage: 1 DF,(160 MG) PR DAY

REACTIONS (5)
  - Breast cancer [Unknown]
  - Thermal burn [Unknown]
  - Blood pressure abnormal [Unknown]
  - Nausea [Unknown]
  - Diarrhoea [Unknown]
